FAERS Safety Report 15311559 (Version 1)
Quarter: 2018Q3

REPORT INFORMATION
  Report Type: Spontaneous
  Country: AU (occurrence: AU)
  Receive Date: 20180823
  Receipt Date: 20180823
  Transmission Date: 20181010
  Serious: Yes (Other)
  Sender: FDA-Public Use
  Company Number: AU-BAYER-2018-158301

PATIENT
  Age: 55 Year

DRUGS (1)
  1. STIVARGA [Suspect]
     Active Substance: REGORAFENIB
     Indication: HEPATOCELLULAR CARCINOMA
     Dosage: UNK
     Dates: start: 201807

REACTIONS (12)
  - Diarrhoea [None]
  - Fatigue [None]
  - Panniculitis [None]
  - Ascites [None]
  - Alpha 1 foetoprotein increased [None]
  - Portal vein thrombosis [None]
  - Oedema peripheral [None]
  - Arthralgia [None]
  - General physical health deterioration [None]
  - Paronychia [None]
  - Hypertension [None]
  - Hepatic failure [None]

NARRATIVE: CASE EVENT DATE: 2018
